FAERS Safety Report 4831008-X (Version None)
Quarter: 2005Q4

REPORT INFORMATION
  Report Type: 
  Country: None (occurrence: None)
  Receive Date: 20051115
  Receipt Date: 20051115
  Transmission Date: 20060501
  Serious: Yes (Life-Threatening, Hospitalization)
  Sender: FDA-Public Use
  Company Number: None

PATIENT
  Age: 57 Year
  Sex: Female
  Weight: 53 kg

DRUGS (7)
  1. DYAZIDE [Suspect]
     Indication: HYPERTENSION
     Dosage: 37.5/25
  2. CARBAMAZEPINE [Suspect]
     Indication: CONVULSION
     Dosage: 200 MG TID CHRONIC
  3. SYNTHROID [Concomitant]
  4. ATENOLOL [Concomitant]
  5. LISINOPRIL [Concomitant]
  6. PRIMIDONE [Concomitant]
  7. TEGRETOL [Concomitant]

REACTIONS (1)
  - HYPONATRAEMIA [None]
